FAERS Safety Report 8572136 (Version 2)
Quarter: 2014Q1

REPORT INFORMATION
  Report Type: Spontaneous
  Country: US (occurrence: None)
  Receive Date: 20120323
  Receipt Date: 20130305
  Transmission Date: 20141002
  Serious: Yes (Hospitalization)
  Sender: FDA-Public Use
  Company Number: 163-21880-11111764

PATIENT
  Age: 83 Year
  Sex: Male

DRUGS (13)
  1. REVLIMID [Suspect]
     Indication: PLASMA CELL MYELOMA
     Dosage: 10 MG, X21 CAPS, PO
     Route: 048
     Dates: start: 20111020
  2. AMBIEN [Concomitant]
  3. ULTI-VITAMIN/FLUORIDE (MULTIVITAMINS W/FLUORIDE) [Concomitant]
  4. DEXAMETHASONE (DEXAMETHASONE) [Concomitant]
  5. ALKERAN [Concomitant]
  6. ASPIRIN (ACETYLSALICYLIC ACID) [Concomitant]
  7. ATROVENT (IPRATROPIUM BROMIDE) [Concomitant]
  8. CALCIUM [Concomitant]
  9. FLEXERILL (CYCLOBENZAPRINCE HYDROCHLORIDE) [Concomitant]
  10. FOLIC ACID [Concomitant]
  11. LEAQUIN (LEVOFLOXACIN) [Concomitant]
  12. PREDNISONE [Concomitant]
  13. PREVACID (LANSOPRAZOLE) [Concomitant]

REACTIONS (2)
  - Pneumonia [None]
  - Plasma cell myeloma [None]
